FAERS Safety Report 10578586 (Version 3)
Quarter: 2015Q3

REPORT INFORMATION
  Report Type: Spontaneous
  Country: FR (occurrence: FR)
  Receive Date: 20141112
  Receipt Date: 20150921
  Transmission Date: 20151125
  Serious: Yes (Other)
  Sender: FDA-Public Use
  Company Number: FR-ELI_LILLY_AND_COMPANY-FR201410011663

PATIENT
  Age: 56 Year
  Sex: Male

DRUGS (14)
  1. EFIENT [Suspect]
     Active Substance: PRASUGREL HYDROCHLORIDE
     Indication: ARTERIOGRAM CORONARY
     Dosage: 10 MG, QD
     Route: 048
     Dates: start: 20140922, end: 20141001
  2. SELOKEN                            /00376902/ [Concomitant]
     Active Substance: METOPROLOL TARTRATE
     Indication: ARTERIOGRAM CORONARY
     Dosage: 50 MG, BID
     Route: 048
     Dates: start: 20140924, end: 20141001
  3. REOPRO [Suspect]
     Active Substance: ABCIXIMAB
     Dosage: 3.3ML/HOUR, UNKNOWN
     Route: 042
     Dates: start: 20140922, end: 20140922
  4. TRIATEC                            /00885601/ [Suspect]
     Active Substance: RAMIPRIL
     Indication: ARTERIOGRAM CORONARY
     Dosage: 2.5 MG, BID
     Route: 048
     Dates: start: 20140924, end: 20141001
  5. OMNIPAQUE [Suspect]
     Active Substance: IOHEXOL
     Indication: ARTERIOGRAM CORONARY
     Dosage: 110 ML, QD
     Route: 042
     Dates: start: 20140922, end: 20140922
  6. HYPNOVEL                           /00634103/ [Suspect]
     Active Substance: MIDAZOLAM\MIDAZOLAM HYDROCHLORIDE
     Indication: ARTERIOGRAM CORONARY
     Dosage: 1MG/ML, QD
     Route: 042
     Dates: start: 20140922, end: 20140922
  7. RISORDAN                           /00586302/ [Suspect]
     Active Substance: ISOSORBIDE DINITRATE
     Indication: ARTERIOGRAM CORONARY
     Dosage: UNK
     Dates: start: 20140922, end: 20140922
  8. SELOKEN                            /00376902/ [Concomitant]
     Active Substance: METOPROLOL TARTRATE
     Dosage: 0.25 DF, BID
     Route: 065
  9. KARDEGIC [Concomitant]
     Active Substance: ASPIRIN LYSINE
     Dosage: 75 MG, QD
     Route: 048
     Dates: start: 20140924
  10. REOPRO [Suspect]
     Active Substance: ABCIXIMAB
     Indication: ARTERIOGRAM CORONARY
     Dosage: 11.9 ML, UNKNOWN BOLUS
     Route: 042
     Dates: start: 20140922, end: 20140922
  11. ASPEGIC [Concomitant]
     Active Substance: ASPIRIN DL-LYSINE
     Dosage: 250 MG, UNKNOWN
     Route: 065
     Dates: start: 20140922, end: 20140922
  12. TAHOR [Suspect]
     Active Substance: ATORVASTATIN CALCIUM
     Indication: ARTERIOGRAM CORONARY
     Dosage: 80 MG, QD
     Route: 048
     Dates: start: 20140924, end: 20141001
  13. CODEINE PHOSPHATE [Suspect]
     Active Substance: CODEINE PHOSPHATE
     Indication: PRODUCT USED FOR UNKNOWN INDICATION
     Dosage: 2.5 MG, BID
     Route: 048
     Dates: start: 20140924, end: 20141001
  14. LOVENOX [Suspect]
     Active Substance: ENOXAPARIN SODIUM
     Indication: ARTERIOGRAM CORONARY
     Dosage: 0.4 ML, QD
     Route: 058
     Dates: start: 20140922, end: 20140926

REACTIONS (1)
  - Thrombocytopenia [Recovered/Resolved]

NARRATIVE: CASE EVENT DATE: 20141001
